FAERS Safety Report 6825967-3 (Version None)
Quarter: 2010Q3

REPORT INFORMATION
  Report Type: 
  Country: None (occurrence: None)
  Receive Date: 20100709
  Receipt Date: 20100329
  Transmission Date: 20110219
  Serious: No
  Sender: FDA-Public Use
  Company Number: A0852953A

PATIENT
  Age: 81 Year
  Sex: Female

DRUGS (6)
  1. REQUIP XL [Suspect]
     Indication: PRODUCT USED FOR UNKNOWN INDICATION
     Dosage: 12MGD PER DAY
     Route: 048
     Dates: start: 20070101
  2. SINEMET [Concomitant]
  3. METOPROLOL [Concomitant]
  4. ARICEPT [Concomitant]
  5. FOSAMAX [Concomitant]
  6. LOPID [Concomitant]

REACTIONS (1)
  - MEDICATION RESIDUE [None]
